FAERS Safety Report 8591168 (Version 2)
Quarter: 2012Q4

REPORT INFORMATION
  Report Type: 
  Country: CA (occurrence: CA)
  Receive Date: 20120601
  Receipt Date: 20120828
  Transmission Date: 20130627
  Serious: Yes (Other)
  Sender: FDA-Public Use
  Company Number: CA-JNJFOC-20120519062

PATIENT
  Age: 74 Year
  Sex: Male
  Weight: 103 kg

DRUGS (7)
  1. REMICADE [Suspect]
     Indication: RHEUMATOID ARTHRITIS
     Route: 042
     Dates: start: 2005
  2. ARTHROTEC [Concomitant]
  3. METOPROLOL [Concomitant]
  4. TIAZAC [Concomitant]
  5. ASA [Concomitant]
  6. AVODART [Concomitant]
  7. RAMIPRIL [Concomitant]

REACTIONS (1)
  - Malignant melanoma [Recovered/Resolved]
